FAERS Safety Report 5170465-9 (Version None)
Quarter: 2006Q4

REPORT INFORMATION
  Report Type: 
  Country: None (occurrence: None)
  Receive Date: 20061204
  Receipt Date: 20061123
  Transmission Date: 20070319
  Serious: Yes (Other)
  Sender: FDA-Public Use
  Company Number: 2006144779

PATIENT
  Age: 81 Year
  Sex: Female

DRUGS (1)
  1. PREDNISOLONE [Suspect]
     Indication: POLYMYALGIA RHEUMATICA

REACTIONS (6)
  - DEAFNESS [None]
  - FATIGUE [None]
  - LOOSE TOOTH [None]
  - OSTEOGENESIS IMPERFECTA [None]
  - TINNITUS [None]
  - VISUAL DISTURBANCE [None]
